FAERS Safety Report 14580882 (Version 2)
Quarter: 2018Q3

REPORT INFORMATION
  Report Type: Other
  Country: IE (occurrence: IE)
  Receive Date: 20180228
  Receipt Date: 20180809
  Transmission Date: 20181010
  Serious: Yes (Other)
  Sender: FDA-Public Use
  Company Number: IE-MACLEODS PHARMACEUTICALS US LTD-MAC2018010378

PATIENT

DRUGS (3)
  1. BOSENTAN. [Suspect]
     Active Substance: BOSENTAN
     Indication: PULMONARY HYPERTENSION
     Dosage: 2 MG/KG, QD, 1 MG/KG, BID
     Route: 048
  2. SILDENAFIL. [Suspect]
     Active Substance: SILDENAFIL
     Indication: PULMONARY HYPERTENSION
     Dosage: 3 MG/KG, QD, 1 MG/KG, TID
     Route: 048
  3. OXYGEN. [Concomitant]
     Active Substance: OXYGEN
     Indication: PRODUCT USED FOR UNKNOWN INDICATION
     Dosage: UNK
     Route: 065

REACTIONS (20)
  - Thoracic cavity drainage [Unknown]
  - Nodal rhythm [Unknown]
  - Intracardiac thrombus [Unknown]
  - Exercise tolerance decreased [Unknown]
  - Protein-losing gastroenteropathy [Unknown]
  - Coronary artery disease [Unknown]
  - Arteriovenous shunt operation [Unknown]
  - Cavopulmonary anastomosis [Unknown]
  - Pulmonary hypertension [Unknown]
  - Fatigue [Unknown]
  - Pleurodesis [Unknown]
  - Pulmonary arterial pressure increased [Unknown]
  - Ventricular dysfunction [Unknown]
  - Condition aggravated [Unknown]
  - Ventricular failure [Unknown]
  - Cardiac pacemaker insertion [Unknown]
  - Pulmonary artery therapeutic procedure [Unknown]
  - Paresis [Unknown]
  - Heart transplant [Unknown]
  - Dyspnoea [Unknown]
